FAERS Safety Report 9117819 (Version 1)
Quarter: 2013Q1

REPORT INFORMATION
  Report Type: Spontaneous
  Country: IN (occurrence: IN)
  Receive Date: 20130225
  Receipt Date: 20130225
  Transmission Date: 20140127
  Serious: Yes (Hospitalization)
  Sender: FDA-Public Use
  Company Number: IN-B.I. PHARMACEUTICALS,INC./RIDGEFIELD-2013-CS-00186IG

PATIENT
  Sex: Male

DRUGS (1)
  1. TRAJENTA [Suspect]
     Indication: DIABETES MELLITUS
     Dosage: 5 MG
     Dates: start: 20121110

REACTIONS (1)
  - Cardiac disorder [Unknown]
